FAERS Safety Report 7401368-4 (Version None)
Quarter: 2011Q2

REPORT INFORMATION
  Report Type: 
  Country: None (occurrence: None)
  Receive Date: 20110407
  Receipt Date: 20110328
  Transmission Date: 20111010
  Serious: Yes (Hospitalization)
  Sender: FDA-Public Use
  Company Number: DE-MERCK-1103DEU00146

PATIENT
  Age: 67 Year
  Sex: Male
  Weight: 73 kg

DRUGS (2)
  1. PRIMAXIN [Suspect]
     Indication: PNEUMONIA
     Route: 042
     Dates: start: 20110201, end: 20110101
  2. VORICONAZOLE [Concomitant]
     Indication: CANDIDA TEST POSITIVE
     Route: 042
     Dates: start: 20110211, end: 20110221

REACTIONS (4)
  - DRUG INEFFECTIVE [None]
  - NEPHROPATHY TOXIC [None]
  - RENAL FAILURE [None]
  - RENAL TUBULAR DISORDER [None]
